FAERS Safety Report 11789380 (Version 2)
Quarter: 2015Q4

REPORT INFORMATION
  Report Type: Spontaneous
  Country: ES (occurrence: ES)
  Receive Date: 20151201
  Receipt Date: 20151215
  Transmission Date: 20160305
  Serious: Yes (Other)
  Sender: FDA-Public Use
  Company Number: ES-CELGENE-ESP-2015115456

PATIENT
  Age: 60 Year
  Sex: Female

DRUGS (6)
  1. LORAZEPAM. [Concomitant]
     Active Substance: LORAZEPAM
     Indication: WEIGHT DECREASED
     Route: 065
  2. ABRAXANE [Suspect]
     Active Substance: PACLITAXEL
     Indication: PANCREATIC CARCINOMA METASTATIC
     Dosage: 125 MILLIGRAM/SQ. METER
     Route: 041
     Dates: start: 201502
  3. METOCLOPRAMIDE. [Concomitant]
     Active Substance: METOCLOPRAMIDE
     Indication: WEIGHT DECREASED
     Route: 065
  4. FENTANYL. [Concomitant]
     Active Substance: FENTANYL
     Indication: WEIGHT DECREASED
     Route: 065
  5. OMEPRAZOLE. [Concomitant]
     Active Substance: OMEPRAZOLE
     Indication: WEIGHT DECREASED
     Route: 065
  6. GEMCITABINE [Concomitant]
     Active Substance: GEMCITABINE\GEMCITABINE HYDROCHLORIDE
     Indication: PANCREATIC CARCINOMA METASTATIC
     Route: 065
     Dates: start: 201502

REACTIONS (10)
  - Abdominal discomfort [Unknown]
  - Asthenia [Unknown]
  - General physical health deterioration [Unknown]
  - Anaemia [Unknown]
  - Ascites [Unknown]
  - Neutropenia [Unknown]
  - Alopecia [Unknown]
  - Pancreatic carcinoma metastatic [Unknown]
  - Thrombocytopenia [Unknown]
  - Nausea [Unknown]

NARRATIVE: CASE EVENT DATE: 201510
